FAERS Safety Report 5598551-X (Version None)
Quarter: 2008Q1

REPORT INFORMATION
  Report Type: 
  Country: None (occurrence: None)
  Receive Date: 20080122
  Receipt Date: 20080111
  Transmission Date: 20080703
  Serious: Yes (Hospitalization)
  Sender: FDA-Public Use
  Company Number: FR-SANOFI-SYNTHELABO-A02200800129

PATIENT
  Sex: Male

DRUGS (5)
  1. RENITEC [Concomitant]
     Dosage: UNK
     Route: 048
  2. FLUOROURACIL [Suspect]
     Indication: COLON CANCER METASTATIC
     Route: 042
     Dates: start: 20070903, end: 20070903
  3. AVASTIN [Suspect]
     Indication: COLON CANCER METASTATIC
     Route: 041
     Dates: start: 20070903, end: 20070903
  4. ELOXATIN [Suspect]
     Indication: COLON CANCER METASTATIC
     Route: 041
     Dates: start: 20070903, end: 20070903
  5. ELVORINE [Suspect]
     Indication: COLON CANCER METASTATIC
     Route: 042
     Dates: start: 20070903, end: 20070903

REACTIONS (4)
  - CARDIAC FAILURE [None]
  - COUGH [None]
  - DYSPNOEA [None]
  - INTERSTITIAL LUNG DISEASE [None]
